FAERS Safety Report 5280000-2 (Version None)
Quarter: 2007Q1

REPORT INFORMATION
  Report Type: 
  Country: None (occurrence: None)
  Receive Date: 20061215
  Receipt Date: 20060719
  Transmission Date: 20070707
  Serious: Yes (Life-Threatening, Other)
  Sender: FDA-Public Use
  Company Number: HQWYE212720JUL06

PATIENT
  Age: 70 Year
  Sex: Female

DRUGS (1)
  1. EFFEXOR XR [Suspect]
     Dosage: 112.5 MG 1 X PER 1 DAY
     Dates: start: 20060301, end: 20060601

REACTIONS (1)
  - ATRIAL FIBRILLATION [None]
